FAERS Safety Report 8256411-X (Version None)
Quarter: 2012Q2

REPORT INFORMATION
  Report Type: 
  Country: None (occurrence: None)
  Receive Date: 20120403
  Receipt Date: 20120326
  Transmission Date: 20120825
  Serious: Yes (Hospitalization)
  Sender: FDA-Public Use
  Company Number: JP-PFIZER INC-2012079417

PATIENT
  Age: 91 Year
  Sex: Female

DRUGS (1)
  1. ZOSYN [Suspect]
     Indication: PYELONEPHRITIS ACUTE
     Dosage: 4.5 G, 3X/DAY
     Route: 041
     Dates: end: 20120321

REACTIONS (1)
  - HYPERNATRAEMIA [None]
